FAERS Safety Report 6669699-3 (Version None)
Quarter: 2010Q2

REPORT INFORMATION
  Report Type: 
  Country: None (occurrence: None)
  Receive Date: 20100406
  Receipt Date: 20100303
  Transmission Date: 20101027
  Serious: Yes (Other)
  Sender: FDA-Public Use
  Company Number: CA-GENENTECH-297140

PATIENT
  Sex: Male
  Weight: 130 kg

DRUGS (13)
  1. RITUXIMAB [Suspect]
     Indication: JUVENILE ARTHRITIS
     Dosage: 1000 MG, DAYS 1+15
     Route: 042
     Dates: start: 20080701
  2. PREDNISONE TAB [Concomitant]
     Indication: JUVENILE ARTHRITIS
     Dosage: UNK
     Route: 048
  3. METHOTREXATE [Concomitant]
     Indication: JUVENILE ARTHRITIS
     Dosage: UNK
     Route: 058
  4. NAPROXEN [Concomitant]
     Indication: JUVENILE ARTHRITIS
     Dosage: 500 MG, BID
     Route: 048
  5. SULFASALAZINE [Concomitant]
     Indication: JUVENILE ARTHRITIS
     Dosage: 100 MG, QD
     Route: 048
  6. SULFASALAZINE [Concomitant]
     Dosage: 1 MG, BID
     Route: 048
  7. FOLIC ACID [Concomitant]
     Indication: JUVENILE ARTHRITIS
     Dosage: UNK
     Route: 048
  8. ZOLEDRONIC ACID [Concomitant]
     Indication: DRUG USE FOR UNKNOWN INDICATION
     Route: 042
  9. TYLENOL-500 [Concomitant]
     Indication: DRUG USE FOR UNKNOWN INDICATION
     Dosage: UNK
     Route: 048
  10. VITAMIN D [Concomitant]
     Indication: DRUG USE FOR UNKNOWN INDICATION
  11. DIPHENHYDRAMINE HYDROCHLORIDE [Concomitant]
     Indication: PREMEDICATION
     Dosage: 50 MG, UNK
     Route: 048
  12. ACETAMINOPHEN [Concomitant]
     Indication: PREMEDICATION
     Dosage: 650 MG, UNK
     Route: 048
  13. METHYLPREDNISOLONE [Concomitant]
     Indication: PREMEDICATION
     Dosage: 100 MG, UNK
     Route: 042

REACTIONS (5)
  - FEELING ABNORMAL [None]
  - FEELING HOT [None]
  - FLUSHING [None]
  - HEART RATE INCREASED [None]
  - MENTAL IMPAIRMENT [None]
